FAERS Safety Report 6608824-7 (Version None)
Quarter: 2010Q1

REPORT INFORMATION
  Report Type: 
  Country: None (occurrence: None)
  Receive Date: 20100301
  Receipt Date: 20100120
  Transmission Date: 20100710
  Serious: Yes (Hospitalization)
  Sender: FDA-Public Use
  Company Number: US-B.I. PHARMACEUTICALS,INC./RIDGEFIELD-2010-BP-00750BP

PATIENT
  Sex: Female
  Weight: 77.6 kg

DRUGS (1)
  1. MELOXICAM [Suspect]
     Indication: OSTEOARTHRITIS
     Dosage: 30 MG
     Route: 048
     Dates: start: 20080821, end: 20080905

REACTIONS (2)
  - GASTROINTESTINAL HAEMORRHAGE [None]
  - OVERDOSE [None]
